FAERS Safety Report 8772946 (Version 2)
Quarter: 2012Q4

REPORT INFORMATION
  Report Type: 
  Country: GB (occurrence: GB)
  Receive Date: 20120907
  Receipt Date: 20121009
  Transmission Date: 20130627
  Serious: Yes (Hospitalization, Other)
  Sender: FDA-Public Use
  Company Number: PHFR2012GB004456

PATIENT
  Sex: Male

DRUGS (3)
  1. CLOZARIL [Suspect]
     Indication: SCHIZOPHRENIA
     Dosage: 250 mg, UNK
     Route: 048
     Dates: start: 20090218
  2. HYOSCINE HYDROBROMIDE [Concomitant]
     Dosage: 100 mg, BID
     Route: 048
  3. PROCYCLIDINE [Concomitant]
     Dosage: 5 mg, BID
     Route: 048

REACTIONS (3)
  - Lethargy [Not Recovered/Not Resolved]
  - Weight decreased [Not Recovered/Not Resolved]
  - Neoplasm malignant [Not Recovered/Not Resolved]
